FAERS Safety Report 15843636 (Version 1)
Quarter: 2019Q1

REPORT INFORMATION
  Report Type: Spontaneous
  Country: US (occurrence: US)
  Receive Date: 20190118
  Receipt Date: 20190118
  Transmission Date: 20190417
  Serious: Yes (Disabling, Other)
  Sender: FDA-Public Use
  Company Number: None

PATIENT
  Age: 40 Year
  Sex: Male
  Weight: 90 kg

DRUGS (9)
  1. SERTRALINE [Suspect]
     Active Substance: SERTRALINE HYDROCHLORIDE
     Indication: DEPRESSION
     Dosage: ?          QUANTITY:2 TABLET(S);?
     Route: 048
     Dates: start: 20171001, end: 20190117
  2. VITAMIN D [Concomitant]
     Active Substance: CHOLECALCIFEROL
  3. ALPRAZOLAM. [Concomitant]
     Active Substance: ALPRAZOLAM
  4. VITAMINS [Concomitant]
     Active Substance: VITAMINS
  5. 360 MG DILTAIZEM [Concomitant]
  6. 500 MG VALTREX [Concomitant]
  7. CLARITIN [Concomitant]
     Active Substance: LORATADINE
  8. CPAP MACHINE [Concomitant]
  9. 200MG SERTRALINE [Concomitant]

REACTIONS (4)
  - Product substitution issue [None]
  - Depression [None]
  - Insurance issue [None]
  - Drug ineffective [None]

NARRATIVE: CASE EVENT DATE: 20190108
